FAERS Safety Report 13797014 (Version 1)
Quarter: 2017Q3

REPORT INFORMATION
  Report Type: Spontaneous
  Country: AU (occurrence: AU)
  Receive Date: 20170727
  Receipt Date: 20170727
  Transmission Date: 20171127
  Serious: Yes (Hospitalization, Other)
  Sender: FDA-Public Use
  Company Number: AU-IPCA LABORATORIES LIMITED-IPC-2017-AU-001886

PATIENT
  Age: 44 Year
  Sex: Male

DRUGS (6)
  1. GLICLAZIDE [Suspect]
     Active Substance: GLICLAZIDE
     Indication: TYPE 2 DIABETES MELLITUS
     Dosage: 60 MG, QD
  2. METFORMIN [Suspect]
     Active Substance: METFORMIN HYDROCHLORIDE
     Indication: TYPE 2 DIABETES MELLITUS
     Dosage: 1 G, BID
  3. GLICLAZIDE [Suspect]
     Active Substance: GLICLAZIDE
     Dosage: 2.1 G, UNK
  4. PARACETAMOL [Concomitant]
     Active Substance: ACETAMINOPHEN
     Indication: PRODUCT USED FOR UNKNOWN INDICATION
  5. METFORMIN [Suspect]
     Active Substance: METFORMIN HYDROCHLORIDE
     Dosage: 35 UNK, UNK
  6. EXENATIDE. [Concomitant]
     Active Substance: EXENATIDE
     Indication: PRODUCT USED FOR UNKNOWN INDICATION
     Dosage: 10 MG, BID

REACTIONS (8)
  - Haemodynamic instability [Recovering/Resolving]
  - Encephalopathy [Unknown]
  - Distributive shock [Recovering/Resolving]
  - Condition aggravated [Unknown]
  - Intentional overdose [Recovered/Resolved]
  - Acute kidney injury [Unknown]
  - Metabolic acidosis [Recovering/Resolving]
  - Vasoplegia syndrome [Recovered/Resolved]
